FAERS Safety Report 9989496 (Version 1)
Quarter: 2014Q1

REPORT INFORMATION
  Report Type: Spontaneous
  Country: US (occurrence: None)
  Receive Date: 20140123
  Receipt Date: 20140123
  Transmission Date: 20141002
  Serious: Yes (Hospitalization)
  Sender: FDA-Public Use
  Company Number: UTC-039917

PATIENT
  Age: 78 Year
  Sex: Female
  Weight: 40.9 kg

DRUGS (3)
  1. REMODULIN [Suspect]
     Indication: PULMONARY ARTERIAL HYPERTENSION
     Dosage: 149.76 UG/KG (0.104 UG/KG, 1 IN 1 MIN) SUBCUTANEOUS
     Route: 058
     Dates: start: 20110406
  2. LETAIRIS (AMBRISENTAN) (TABLETS) [Concomitant]
  3. REVATIO (SILDNAFIL CITRATE) [Concomitant]

REACTIONS (2)
  - Pulmonary arterial hypertension [None]
  - Investigation [None]
